FAERS Safety Report 8014143-7 (Version None)
Quarter: 2011Q4

REPORT INFORMATION
  Report Type: 
  Country: None (occurrence: None)
  Receive Date: 20111229
  Receipt Date: 20111227
  Transmission Date: 20120403
  Serious: No
  Sender: FDA-Public Use
  Company Number: US-TEVA-315182USA

PATIENT
  Sex: Female

DRUGS (4)
  1. INTERFERON BETA-1A [Suspect]
  2. COPAXONE [Suspect]
     Indication: MULTIPLE SCLEROSIS
     Route: 058
  3. INTERFERON BETA NOS [Suspect]
  4. NATALIZUMAB [Suspect]

REACTIONS (1)
  - BALANCE DISORDER [None]
